FAERS Safety Report 8425663-5 (Version None)
Quarter: 2012Q2

REPORT INFORMATION
  Report Type: 
  Country: None (occurrence: None)
  Receive Date: 20120611
  Receipt Date: 20120607
  Transmission Date: 20120825
  Serious: Yes (Death, Hospitalization, Other)
  Sender: FDA-Public Use
  Company Number: PHEH2007US08749

PATIENT
  Sex: Female

DRUGS (27)
  1. COMBIVENT [Concomitant]
     Dosage: 2 DF,
  2. PREVACID [Concomitant]
     Dosage: 30 MG, QD
  3. AROMASIN [Concomitant]
  4. ROXICET [Concomitant]
     Dates: start: 20030901
  5. TAMOXIFEN CITRATE [Concomitant]
     Dates: start: 19990801
  6. ATIVAN [Concomitant]
  7. CELEBREX [Concomitant]
     Dosage: 200 MG, QD
  8. REGLAN [Concomitant]
  9. FASLODEX [Concomitant]
  10. PERCOCET [Concomitant]
  11. CLINDAMYCIN [Concomitant]
     Dosage: 300 MG, QID
     Dates: start: 20060625
  12. MEGACE [Concomitant]
  13. FEMARA [Concomitant]
  14. RADIOTHERAPY [Concomitant]
     Indication: PELVIC FRACTURE
     Dates: start: 20030501
  15. OXYCODONE HCL [Concomitant]
  16. FLONASE [Concomitant]
  17. DIGOXIN [Concomitant]
     Dosage: 0.25 MG, QD
  18. GEMZAR [Concomitant]
  19. ZOMETA [Suspect]
     Indication: METASTASES TO BONE
     Dates: start: 20030218, end: 20050127
  20. LEXAPRO [Concomitant]
  21. EXTRA STRENGTH TYLENOL [Concomitant]
  22. ACETAMINOPHEN [Concomitant]
  23. VASOTEC [Concomitant]
     Dosage: 10 MG, QD
     Route: 048
  24. AREDIA [Suspect]
     Dates: start: 20050101
  25. OXYCONTIN [Concomitant]
     Dosage: 30 MG, BID
  26. INVANZ [Concomitant]
     Dosage: 1 G, QD
     Dates: start: 20060624
  27. LASIX [Concomitant]
     Dosage: 20 MG, QD

REACTIONS (81)
  - NEOPLASM PROGRESSION [None]
  - BONE LESION [None]
  - OSTEOSCLEROSIS [None]
  - BONE FRAGMENTATION [None]
  - OBSTRUCTIVE AIRWAYS DISORDER [None]
  - METASTASES TO LUNG [None]
  - PATHOLOGICAL FRACTURE [None]
  - ANXIETY [None]
  - WEIGHT DECREASED [None]
  - ORAL CAVITY FISTULA [None]
  - ARTHRITIS [None]
  - INFECTION [None]
  - ATRIAL FLUTTER [None]
  - NEOPLASM MALIGNANT [None]
  - DENTAL CARIES [None]
  - CROHN'S DISEASE [None]
  - HYPERTENSION [None]
  - HAEMORRHOIDS [None]
  - DYSPNOEA [None]
  - ANAEMIA [None]
  - CONSTIPATION [None]
  - HYPOTENSION [None]
  - RIB FRACTURE [None]
  - URINARY TRACT INFECTION [None]
  - EMOTIONAL DISTRESS [None]
  - BONE PAIN [None]
  - ILEAL STENOSIS [None]
  - RESPIRATORY FAILURE [None]
  - PNEUMONIA [None]
  - SMALL INTESTINAL OBSTRUCTION [None]
  - CHRONIC OBSTRUCTIVE PULMONARY DISEASE [None]
  - ATELECTASIS [None]
  - CONTUSION [None]
  - OEDEMA PERIPHERAL [None]
  - TIBIA FRACTURE [None]
  - DECREASED INTEREST [None]
  - CHOLELITHIASIS [None]
  - PLEURAL EFFUSION [None]
  - PAIN IN JAW [None]
  - ODYNOPHAGIA [None]
  - DYSPHAGIA [None]
  - ILEUS [None]
  - ABDOMINAL DISTENSION [None]
  - HYPOXIA [None]
  - DIARRHOEA [None]
  - OSTEONECROSIS OF JAW [None]
  - METASTASES TO BONE [None]
  - METASTASES TO PLEURA [None]
  - IMPAIRED HEALING [None]
  - MUCOSAL ULCERATION [None]
  - FALL [None]
  - FIBULA FRACTURE [None]
  - NASAL CONGESTION [None]
  - DIZZINESS [None]
  - DYSTROPHIC CALCIFICATION [None]
  - CARDIOMEGALY [None]
  - INJURY [None]
  - BONE DISORDER [None]
  - PAIN [None]
  - ACQUIRED DIAPHRAGMATIC EVENTRATION [None]
  - OSTEOPENIA [None]
  - JAW FRACTURE [None]
  - ABDOMINAL PAIN UPPER [None]
  - ASCITES [None]
  - SPINAL COMPRESSION FRACTURE [None]
  - DEATH [None]
  - GENERAL PHYSICAL HEALTH DETERIORATION [None]
  - OSTEOLYSIS [None]
  - SPINAL OSTEOARTHRITIS [None]
  - LUNG INFILTRATION [None]
  - DECREASED APPETITE [None]
  - OSTEOMYELITIS [None]
  - FLUID OVERLOAD [None]
  - METASTASES TO LIVER [None]
  - TACHYCARDIA [None]
  - CHEST PAIN [None]
  - JOINT SWELLING [None]
  - ORAL DISORDER [None]
  - INFLAMMATION [None]
  - PANCYTOPENIA [None]
  - LYMPHADENOPATHY [None]
